FAERS Safety Report 5823082-9 (Version None)
Quarter: 2008Q3

REPORT INFORMATION
  Report Type: 
  Country: None (occurrence: None)
  Receive Date: 20080725
  Receipt Date: 20070628
  Transmission Date: 20090109
  Serious: No
  Sender: FDA-Public Use
  Company Number: US-AMGEN-KDL231949

PATIENT
  Sex: Male
  Weight: 72.6 kg

DRUGS (3)
  1. PROCRIT [Suspect]
     Indication: PRE-EXISTING DISEASE
     Dates: start: 20070620
  2. INTERFERON [Concomitant]
  3. RIBAVIRIN [Concomitant]

REACTIONS (1)
  - FEELING HOT [None]
